FAERS Safety Report 8923262 (Version 1)
Quarter: 2012Q4

REPORT INFORMATION
  Report Type: 
  Country: IT (occurrence: IT)
  Receive Date: 20121124
  Receipt Date: 20121124
  Transmission Date: 20130627
  Serious: Yes (Other)
  Sender: FDA-Public Use
  Company Number: PHHY2012IT106604

PATIENT

DRUGS (1)
  1. AMOXICILLIN AND CLAVULANATE POTASSIUM [Suspect]
     Indication: PHARYNGITIS
     Route: 048
     Dates: start: 20120919, end: 20120923

REACTIONS (5)
  - Asthenia [Unknown]
  - Hyperpyrexia [Unknown]
  - Diarrhoea [Unknown]
  - Rash morbilliform [Unknown]
  - Pruritus [Unknown]
